FAERS Safety Report 5230842-4 (Version None)
Quarter: 2007Q1

REPORT INFORMATION
  Report Type: 
  Country: None (occurrence: None)
  Receive Date: 20070205
  Receipt Date: 20070205
  Transmission Date: 20070707
  Serious: Yes (Death)
  Sender: FDA-Public Use
  Company Number: None

PATIENT
  Age: 69 Year
  Sex: Male
  Weight: 84 kg

DRUGS (1)
  1. INFLIXIMAB (CENTOCOR) [Suspect]
     Indication: COLITIS ULCERATIVE
     Dosage: 5MG/KG IV X1 IV EARLY IN THE MONTH (FIRST 2 WEEKS)
     Route: 042
     Dates: start: 20070101

REACTIONS (1)
  - MENINGITIS LISTERIA [None]
